FAERS Safety Report 4275177-1 (Version None)
Quarter: 2004Q1

REPORT INFORMATION
  Report Type: 
  Country: None (occurrence: None)
  Receive Date: 20040116
  Receipt Date: 20040108
  Transmission Date: 20041129
  Serious: Yes (Death)
  Sender: FDA-Public Use
  Company Number: 2004AP00107

PATIENT

DRUGS (1)
  1. ATENOLOL [Suspect]
     Dosage: 50 MG DAILY PO
     Route: 048

REACTIONS (5)
  - DEATH NEONATAL [None]
  - DRUG EXPOSURE DURING PREGNANCY [None]
  - FOETAL GROWTH RETARDATION [None]
  - MATERNAL CONDITION AFFECTING FOETUS [None]
  - PREMATURE BABY [None]
